FAERS Safety Report 6138727-6 (Version None)
Quarter: 2009Q1

REPORT INFORMATION
  Report Type: 
  Country: None (occurrence: None)
  Receive Date: 20090331
  Receipt Date: 20090326
  Transmission Date: 20090719
  Serious: Yes (Death)
  Sender: FDA-Public Use
  Company Number: US-JNJFOC-20090307095

PATIENT
  Age: 78 Year
  Sex: Female

DRUGS (4)
  1. INVEGA [Suspect]
     Indication: DELUSION
     Route: 048
  2. INVEGA [Suspect]
     Indication: HALLUCINATION, AUDITORY
     Route: 048
  3. CYMBALTA [Concomitant]
     Indication: DEPRESSION
  4. DECADRON [Concomitant]
     Indication: MULTIPLE MYELOMA

REACTIONS (2)
  - HYPERSOMNIA [None]
  - SUDDEN CARDIAC DEATH [None]
